FAERS Safety Report 9356494 (Version 3)
Quarter: 2013Q3

REPORT INFORMATION
  Report Type: Report from Study
  Country: JP (occurrence: JP)
  Receive Date: 20130619
  Receipt Date: 20130719
  Transmission Date: 20140515
  Serious: Yes (Hospitalization)
  Sender: FDA-Public Use
  Company Number: JP-BAXTER-2013BAX022635

PATIENT
  Age: 52 Year
  Sex: Female

DRUGS (54)
  1. CYCLOPHOSPHAMIDE FOR INJECTION, USP [Suspect]
     Indication: B-CELL LYMPHOMA
     Route: 042
     Dates: start: 20130302
  2. CYCLOPHOSPHAMIDE FOR INJECTION, USP [Suspect]
     Route: 042
     Dates: start: 20130529
  3. RITUXIMAB [Suspect]
     Indication: B-CELL LYMPHOMA
     Dosage: 1 MG/ML; VOLUME 590 ML
     Route: 042
     Dates: start: 20130226
  4. RITUXIMAB [Suspect]
     Route: 042
     Dates: start: 20130529
  5. DOXORUBICIN [Suspect]
     Indication: B-CELL LYMPHOMA
     Route: 042
     Dates: start: 20130302
  6. DOXORUBICIN [Suspect]
     Route: 042
     Dates: start: 20130529
  7. VINCRISTINE [Suspect]
     Indication: B-CELL LYMPHOMA
     Route: 040
     Dates: start: 20130302
  8. VINCRISTINE [Suspect]
     Route: 040
     Dates: start: 20130529
  9. PREDNISONE [Suspect]
     Indication: B-CELL LYMPHOMA
     Route: 065
     Dates: start: 20130226
  10. PREDNISONE [Suspect]
     Route: 065
     Dates: start: 20130529
  11. BROTIZOLAM [Concomitant]
     Indication: PRODUCT USED FOR UNKNOWN INDICATION
     Route: 065
     Dates: start: 20130223
  12. PANTETHINE [Concomitant]
     Indication: CONSTIPATION
     Route: 065
     Dates: start: 20130225
  13. MAGNESIUM OXIDE [Concomitant]
     Indication: CONSTIPATION
     Route: 065
     Dates: start: 20130225
  14. FAMOTIDINE [Concomitant]
     Indication: GASTRITIS
     Route: 065
     Dates: start: 20130225
  15. BAKTAR [Concomitant]
     Indication: INFECTION
     Route: 065
     Dates: start: 20130225
  16. ALLOPURINOL [Concomitant]
     Indication: TUMOUR LYSIS SYNDROME
     Route: 065
     Dates: start: 20130225
  17. ZOPICLONE [Concomitant]
     Indication: PRODUCT USED FOR UNKNOWN INDICATION
     Route: 065
     Dates: start: 20130225
  18. ETIZOLAM [Concomitant]
     Indication: PRODUCT USED FOR UNKNOWN INDICATION
     Route: 065
     Dates: start: 20130226
  19. SODIUM GUALENATE [Concomitant]
     Indication: INFECTION
     Route: 065
     Dates: start: 20130228
  20. NITRAZEPAM [Concomitant]
     Indication: PRODUCT USED FOR UNKNOWN INDICATION
     Route: 065
     Dates: start: 20130301
  21. KETOPROFEN [Concomitant]
     Indication: MUSCULOSKELETAL STIFFNESS
     Route: 065
     Dates: start: 20130304
  22. KETOPROFEN [Concomitant]
     Route: 065
     Dates: start: 20130507
  23. QUAZEPAM [Concomitant]
     Indication: PRODUCT USED FOR UNKNOWN INDICATION
     Route: 065
     Dates: start: 20130307
  24. QUAZEPAM [Concomitant]
     Route: 065
     Dates: start: 20130507
  25. ZOLPIDEM TARTRATE [Concomitant]
     Indication: PRODUCT USED FOR UNKNOWN INDICATION
     Route: 065
     Dates: start: 20130307
  26. ZOLPIDEM TARTRATE [Concomitant]
     Route: 065
     Dates: start: 20130507
  27. LOXOPROFEN SODIUM [Concomitant]
     Indication: HEADACHE
     Route: 065
     Dates: start: 20130308
  28. LOXOPROFEN SODIUM [Concomitant]
     Route: 065
     Dates: start: 20130507
  29. LOXOPROFEN SODIUM [Concomitant]
     Route: 065
     Dates: start: 20130308
  30. HYDROXYZINE [Concomitant]
     Indication: PRODUCT USED FOR UNKNOWN INDICATION
     Route: 065
     Dates: start: 20130308
  31. HYDROXYZINE [Concomitant]
     Route: 065
     Dates: start: 20130507
  32. HYDROXYZINE [Concomitant]
     Route: 065
     Dates: start: 20130308
  33. MS REISHIPPU [Concomitant]
     Indication: MUSCULOSKELETAL STIFFNESS
     Route: 065
     Dates: start: 20130309
  34. MS REISHIPPU [Concomitant]
     Route: 065
     Dates: start: 20130507
  35. MS REISHIPPU [Concomitant]
     Route: 065
     Dates: start: 20130308
  36. ACETAMINOPHEN [Concomitant]
     Indication: HEADACHE
     Route: 065
     Dates: start: 20130225
  37. ACETAMINOPHEN [Concomitant]
     Route: 065
     Dates: start: 20130507
  38. ACETAMINOPHEN [Concomitant]
     Route: 065
     Dates: start: 20130308
  39. EPERISONE HYDROCHLORIDE [Concomitant]
     Indication: MUSCULOSKELETAL STIFFNESS
     Route: 065
     Dates: start: 20130311
  40. EPERISONE HYDROCHLORIDE [Concomitant]
     Route: 065
     Dates: start: 20130507
  41. EPERISONE HYDROCHLORIDE [Concomitant]
     Route: 065
     Dates: start: 20130308
  42. UREA [Concomitant]
     Indication: RASH
     Route: 065
     Dates: start: 20130326
  43. UREA [Concomitant]
     Route: 065
     Dates: start: 20130507
  44. UREA [Concomitant]
     Route: 065
     Dates: start: 20130308
  45. FUROSEMIDE [Concomitant]
     Indication: OEDEMA
     Route: 065
     Dates: start: 20130327
  46. FUROSEMIDE [Concomitant]
     Route: 065
     Dates: start: 20130507
  47. FUROSEMIDE [Concomitant]
     Route: 065
     Dates: start: 20130308
  48. FELBINAC [Concomitant]
     Indication: MUSCULOSKELETAL STIFFNESS
     Route: 065
     Dates: start: 20130529
  49. FELBINAC [Concomitant]
     Route: 065
     Dates: start: 20130507
  50. FELBINAC [Concomitant]
     Route: 065
     Dates: start: 20130308
  51. DOMPERIDONE [Concomitant]
     Indication: NAUSEA
     Route: 065
     Dates: start: 20130304
  52. DOMPERIDONE [Concomitant]
     Route: 065
     Dates: start: 20130507
  53. DOMPERIDONE [Concomitant]
     Route: 065
     Dates: start: 20130308
  54. DIPHENHYDRAMINE [Concomitant]
     Indication: PRODUCT USED FOR UNKNOWN INDICATION
     Route: 065

REACTIONS (1)
  - Colitis [Recovered/Resolved]
